FAERS Safety Report 21298409 (Version 1)
Quarter: 2022Q3

REPORT INFORMATION
  Report Type: Spontaneous
  Country: CA (occurrence: CA)
  Receive Date: 20220906
  Receipt Date: 20220906
  Transmission Date: 20221027
  Serious: Yes (Hospitalization)
  Sender: FDA-Public Use
  Company Number: CA-PFIZER INC-202201113862

PATIENT
  Age: 76 Year
  Sex: Female
  Weight: 56 kg

DRUGS (28)
  1. ALPRAZOLAM [Suspect]
     Active Substance: ALPRAZOLAM
     Indication: Depression
     Dosage: 0.5 MG, 2 EVERY 1 DAY
     Route: 048
  2. ALPRAZOLAM [Suspect]
     Active Substance: ALPRAZOLAM
     Indication: Anxiety
  3. ACETAMINOPHEN [Concomitant]
     Active Substance: ACETAMINOPHEN
  4. AZOPT [BRINZOLAMIDE] [Concomitant]
  5. BIOTENE [GLUCOSE OXIDASE;LACTOPEROXIDASE] [Concomitant]
  6. BRIMONIDINE [Concomitant]
     Active Substance: BRIMONIDINE TARTRATE
  7. CALCIUM [Concomitant]
     Active Substance: CALCIUM
  8. CALCIUM CARBONATE [Concomitant]
     Active Substance: CALCIUM CARBONATE
  9. CHOLECALCIFEROL [Concomitant]
     Active Substance: CHOLECALCIFEROL
  10. CIMETIDINE [Concomitant]
     Active Substance: CIMETIDINE
  11. CLONAZEPAM [Concomitant]
     Active Substance: CLONAZEPAM
  12. CODEINE [Concomitant]
     Active Substance: CODEINE
  13. CYANOCOBALAMIN [Concomitant]
     Active Substance: CYANOCOBALAMIN
  14. CYCLOBENZAPRINE [Concomitant]
     Active Substance: CYCLOBENZAPRINE
     Dosage: UNK
  15. CYCLOBENZAPRINE [Concomitant]
     Active Substance: CYCLOBENZAPRINE
     Dosage: UNK
  16. DOCUSATE SODIUM [Concomitant]
     Active Substance: DOCUSATE SODIUM
  17. LATANOPROST [Concomitant]
     Active Substance: LATANOPROST
  18. MAGNESIUM [Concomitant]
     Active Substance: MAGNESIUM
  19. MELATONIN [Concomitant]
     Active Substance: MELATONIN
  20. MELOXICAM [Concomitant]
     Active Substance: MELOXICAM
  21. FISH OIL [Concomitant]
     Active Substance: FISH OIL
  22. PANTOPRAZOLE [Concomitant]
     Active Substance: PANTOPRAZOLE
  23. SENNOSIDES [Concomitant]
     Active Substance: SENNOSIDES
  24. SPIRONOLACTONE [Concomitant]
     Active Substance: SPIRONOLACTONE
  25. TYLENOL WITH CODEINE [Concomitant]
     Active Substance: ACETAMINOPHEN\CODEINE PHOSPHATE
  26. VENLAFAXINE HYDROCHLORIDE [Concomitant]
     Active Substance: VENLAFAXINE HYDROCHLORIDE
  27. VITAMIN D NOS [Concomitant]
     Active Substance: VITAMIN D NOS
  28. DICLOFENAC [Concomitant]
     Active Substance: DICLOFENAC

REACTIONS (1)
  - Affect lability [Recovered/Resolved]
